FAERS Safety Report 13079118 (Version 1)
Quarter: 2017Q1

REPORT INFORMATION
  Report Type: Spontaneous
  Country: FR (occurrence: FR)
  Receive Date: 20170102
  Receipt Date: 20170102
  Transmission Date: 20170428
  Serious: Yes (Disabling)
  Sender: FDA-Public Use
  Company Number: FR-MYLANLABS-2016M1058628

PATIENT

DRUGS (4)
  1. RISEDRONATE [Suspect]
     Active Substance: RISEDRONATE SODIUM
     Indication: OSTEOPOROSIS
     Dosage: UNK
     Route: 048
     Dates: end: 201509
  2. CRESTOR [Suspect]
     Active Substance: ROSUVASTATIN CALCIUM
     Indication: HYPERCHOLESTEROLAEMIA
     Dosage: UNK
     Route: 048
  3. LERCANIDIPINE MYLAN [Suspect]
     Active Substance: LERCANIDIPINE
     Indication: HYPERCHOLESTEROLAEMIA
     Dosage: UNK
     Route: 048
     Dates: end: 201509
  4. ATORVASTATIN [Suspect]
     Active Substance: ATORVASTATIN
     Indication: HYPERCHOLESTEROLAEMIA
     Dosage: UNK
     Route: 048
     Dates: end: 201509

REACTIONS (7)
  - Musculoskeletal pain [Not Recovered/Not Resolved]
  - Cachexia [Not Recovered/Not Resolved]
  - Tendonitis [Not Recovered/Not Resolved]
  - Arthralgia [Not Recovered/Not Resolved]
  - Coordination abnormal [Not Recovered/Not Resolved]
  - Weight decreased [Not Recovered/Not Resolved]
  - Gait disturbance [Not Recovered/Not Resolved]
